FAERS Safety Report 25138239 (Version 5)
Quarter: 2025Q4

REPORT INFORMATION
  Report Type: Report from Study
  Country: EU (occurrence: EU)
  Receive Date: 20250330
  Receipt Date: 20251201
  Transmission Date: 20260117
  Serious: Yes (Hospitalization, Other)
  Sender: ABBVIE
  Company Number: EU-ABBVIE-6201599

PATIENT
  Age: 64 Year
  Sex: Male
  Weight: 110 kg

DRUGS (14)
  1. SKYRIZI [Suspect]
     Active Substance: RISANKIZUMAB-RZAA
     Indication: Psoriasis
     Route: 058
     Dates: start: 20220113
  2. SKYRIZI [Suspect]
     Active Substance: RISANKIZUMAB-RZAA
     Dosage: 75 MG/0.83 ML
     Route: 058
  3. PANTOPRAZOLE [Concomitant]
     Active Substance: PANTOPRAZOLE
     Indication: Product used for unknown indication
  4. MILNACIPRAN HYDROCHLORIDE [Concomitant]
     Active Substance: MILNACIPRAN HYDROCHLORIDE
     Indication: Product used for unknown indication
  5. OZEMPIC [Concomitant]
     Active Substance: SEMAGLUTIDE
     Indication: Product used for unknown indication
     Dosage: PER 0.74 ML SOLUTION
  6. OZEMPIC [Concomitant]
     Active Substance: SEMAGLUTIDE
     Indication: Product used for unknown indication
  7. AMIODARONE [Concomitant]
     Active Substance: AMIODARONE
     Indication: Product used for unknown indication
     Dosage: DISCONTINUED IN 2025
  8. METHYLPREDNISOLONE ACEPONATE [Concomitant]
     Active Substance: METHYLPREDNISOLONE ACEPONATE
     Indication: Product used for unknown indication
  9. CLOPIDOGREL [Concomitant]
     Active Substance: CLOPIDOGREL BISULFATE
     Indication: Product used for unknown indication
  10. VENLAFAXINE [Concomitant]
     Active Substance: VENLAFAXINE HYDROCHLORIDE
     Indication: Product used for unknown indication
  11. ELIQUIS [Concomitant]
     Active Substance: APIXABAN
     Indication: Product used for unknown indication
  12. ATORVASTATIN\EZETIMIBE [Concomitant]
     Active Substance: ATORVASTATIN\EZETIMIBE
     Indication: Product used for unknown indication
     Dosage: 10/40 MG
  13. AMLODIPINE [Concomitant]
     Active Substance: AMLODIPINE BESYLATE
     Indication: Product used for unknown indication
  14. METOPROLOL [Concomitant]
     Active Substance: METOPROLOL
     Indication: Product used for unknown indication

REACTIONS (21)
  - Arteriovenous fistula site complication [Recovered/Resolved]
  - Spinal stenosis [Recovered/Resolved]
  - Atrial fibrillation [Recovered/Resolved]
  - Hyperthyroidism [Not Recovered/Not Resolved]
  - Peripheral arterial occlusive disease [Unknown]
  - Cardiac ablation [Unknown]
  - Atrial fibrillation [Not Recovered/Not Resolved]
  - Cardiac hypertrophy [Unknown]
  - Left ventricular dysfunction [Unknown]
  - Peripheral arterial occlusive disease [Recovered/Resolved]
  - Left atrial dilatation [Unknown]
  - Trigger finger [Recovered/Resolved]
  - Sciatica [Recovered/Resolved]
  - Psoriasis [Recovered/Resolved]
  - Eczema [Recovered/Resolved]
  - Erysipelas [Recovered/Resolved]
  - Squamous cell carcinoma [Recovered/Resolved]
  - Pulmonary embolism [Recovered/Resolved]
  - Cardiac ablation [Recovered/Resolved]
  - Atrial fibrillation [Not Recovered/Not Resolved]
  - Skin lesion [Recovered/Resolved]

NARRATIVE: CASE EVENT DATE: 20230725
